FAERS Safety Report 17509270 (Version 1)
Quarter: 2020Q1

REPORT INFORMATION
  Report Type: Report from Study
  Country: PT (occurrence: PT)
  Receive Date: 20200306
  Receipt Date: 20200306
  Transmission Date: 20200409
  Serious: Yes (Death)
  Sender: FDA-Public Use
  Company Number: PT-CELLTRION INC.-2020PT019236

PATIENT

DRUGS (19)
  1. REMSIMA [Suspect]
     Active Substance: INFLIXIMAB
     Dosage: 270 MG
     Route: 042
     Dates: start: 20180910
  2. REMSIMA [Suspect]
     Active Substance: INFLIXIMAB
     Dosage: 270 MG
     Route: 042
     Dates: start: 20181108, end: 20181108
  3. REMSIMA [Suspect]
     Active Substance: INFLIXIMAB
     Dosage: 260 MG
     Route: 042
     Dates: start: 20180712, end: 20180712
  4. REMSIMA [Suspect]
     Active Substance: INFLIXIMAB
     Dosage: 260 MG
     Route: 042
     Dates: start: 20191030, end: 20191030
  5. REMSIMA [Suspect]
     Active Substance: INFLIXIMAB
     Dosage: 260 MG
     Route: 042
     Dates: start: 20180125, end: 20180125
  6. CHOLECALCIFEROL [Concomitant]
     Active Substance: CHOLECALCIFEROL
     Indication: OSTEOPOROSIS
     Dosage: 5600 INTERNATIONAL UNIT, 1/WEEK
     Route: 048
     Dates: start: 2012
  7. LORAZEPAM. [Concomitant]
     Active Substance: LORAZEPAM
     Indication: ANXIETY
     Dosage: 1 MILLIGRAM, PRN
     Route: 048
     Dates: start: 20170223
  8. REMSIMA [Suspect]
     Active Substance: INFLIXIMAB
     Indication: COLITIS ULCERATIVE
     Dosage: 250 MG
     Route: 042
     Dates: start: 20171006, end: 20171006
  9. REMSIMA [Suspect]
     Active Substance: INFLIXIMAB
     Dosage: 265 MG
     Route: 042
     Dates: start: 20171130, end: 20171130
  10. REMSIMA [Suspect]
     Active Substance: INFLIXIMAB
     Dosage: 265 MG
     Route: 042
     Dates: start: 20190416
  11. REMSIMA [Suspect]
     Active Substance: INFLIXIMAB
     Dosage: 265 MG
     Route: 042
     Dates: start: 20190612
  12. REMSIMA [Suspect]
     Active Substance: INFLIXIMAB
     Dosage: 265 MG
     Route: 042
     Dates: start: 20190724, end: 20190724
  13. ALENDRONIC ACID [Concomitant]
     Active Substance: ALENDRONIC ACID
     Indication: OSTEOPOROSIS
     Dosage: 70 MILLIGRAM, 1/WEEK
     Route: 048
     Dates: start: 2012
  14. MESALAZINE [Concomitant]
     Active Substance: MESALAMINE
     Indication: INFLAMMATORY BOWEL DISEASE
     Dosage: 3 GRAM, QD
     Route: 048
     Dates: start: 2014
  15. REMSIMA [Suspect]
     Active Substance: INFLIXIMAB
     Dosage: 260 MG
     Route: 042
     Dates: start: 20180322, end: 20180322
  16. REMSIMA [Suspect]
     Active Substance: INFLIXIMAB
     Dosage: 260 MG
     Route: 042
     Dates: start: 20180517, end: 20180517
  17. REMSIMA [Suspect]
     Active Substance: INFLIXIMAB
     Dosage: 255 MG
     Route: 042
     Dates: start: 20190103, end: 20190103
  18. REMSIMA [Suspect]
     Active Substance: INFLIXIMAB
     Dosage: 260 MG
     Route: 042
     Dates: start: 20190904
  19. REMSIMA [Suspect]
     Active Substance: INFLIXIMAB
     Dosage: 270 MG
     Route: 042
     Dates: start: 20190218, end: 20190218

REACTIONS (1)
  - Fall [Fatal]

NARRATIVE: CASE EVENT DATE: 20191203
